FAERS Safety Report 14095771 (Version 1)
Quarter: 2017Q4

REPORT INFORMATION
  Report Type: Spontaneous
  Country: JP (occurrence: JP)
  Receive Date: 20171016
  Receipt Date: 20171016
  Transmission Date: 20180321
  Serious: Yes (Death, Other)
  Sender: FDA-Public Use
  Company Number: JP-BRISTOL-MYERS SQUIBB COMPANY-12165031

PATIENT
  Age: 62 Year
  Sex: Female

DRUGS (5)
  1. GRAN [Concomitant]
     Active Substance: FILGRASTIM
     Indication: PRODUCT USED FOR UNKNOWN INDICATION
     Dosage: .3 ML, UNK
     Route: 058
     Dates: start: 19920920, end: 19921108
  2. VEPESID [Suspect]
     Active Substance: ETOPOSIDE
     Indication: LUNG NEOPLASM MALIGNANT
     Dosage: 80 MG/M2, UNK
     Route: 042
     Dates: start: 19920917, end: 19921022
  3. ONCOVIN [Suspect]
     Active Substance: VINCRISTINE SULFATE
     Indication: LUNG NEOPLASM MALIGNANT
     Dosage: 1 MG/M2, UNK
     Route: 042
     Dates: start: 19920917, end: 19921022
  4. RANDA [Suspect]
     Active Substance: CISPLATIN
     Indication: LUNG NEOPLASM MALIGNANT
     Dosage: 25 MG/M2, UNK
     Route: 042
     Dates: start: 19920917, end: 19921022
  5. ADRIACIN [Suspect]
     Active Substance: DOXORUBICIN HYDROCHLORIDE
     Indication: LUNG NEOPLASM MALIGNANT
     Dosage: 40 MG/M2, UNK
     Route: 042
     Dates: start: 19920917, end: 19921022

REACTIONS (1)
  - Febrile neutropenia [Fatal]

NARRATIVE: CASE EVENT DATE: 19921028
